FAERS Safety Report 7057199-0 (Version None)
Quarter: 2010Q4

REPORT INFORMATION
  Report Type: 
  Country: None (occurrence: None)
  Receive Date: 20101022
  Receipt Date: 20101013
  Transmission Date: 20110411
  Serious: Yes (Other)
  Sender: FDA-Public Use
  Company Number: US-US-EMD SERONO, INC.-7022086

PATIENT
  Sex: Female

DRUGS (6)
  1. REBIF [Suspect]
     Indication: MULTIPLE SCLEROSIS
     Route: 058
     Dates: start: 20090718
  2. DEPAKOTE [Concomitant]
     Indication: PETIT MAL EPILEPSY
     Dates: end: 20100101
  3. DEPAKOTE [Concomitant]
     Dates: start: 20100101, end: 20100101
  4. DEPAKOTE [Concomitant]
     Dates: start: 20100101, end: 20100101
  5. DEPAKOTE [Concomitant]
     Dates: start: 20100101
  6. FLU SHOT [Concomitant]
     Dates: start: 20100101, end: 20100101

REACTIONS (7)
  - CONCUSSION [None]
  - GRAND MAL CONVULSION [None]
  - INJECTION SITE ERYTHEMA [None]
  - MULTIPLE SCLEROSIS [None]
  - MULTIPLE SCLEROSIS RELAPSE [None]
  - OROPHARYNGEAL PAIN [None]
  - PYREXIA [None]
